FAERS Safety Report 4875674-1 (Version None)
Quarter: 2006Q1

REPORT INFORMATION
  Report Type: 
  Country: None (occurrence: None)
  Receive Date: 20060105
  Receipt Date: 20051223
  Transmission Date: 20060701
  Serious: Yes (Other)
  Sender: FDA-Public Use
  Company Number: SGB1-2005-00594

PATIENT
  Age: 56 Year
  Sex: Male

DRUGS (16)
  1. LANTHANUM CARBONATE (LANTHANUM CARBONATE) TABLET CHEWABLE [Suspect]
     Indication: HYPERPHOSPHATAEMIA
     Dosage: 3000 MG, DAILY, ORAL; SEE IMAGE
     Route: 048
     Dates: start: 20050329, end: 20050508
  2. LANTHANUM CARBONATE (LANTHANUM CARBONATE) TABLET CHEWABLE [Suspect]
     Indication: HYPERPHOSPHATAEMIA
     Dosage: 3000 MG, DAILY, ORAL; SEE IMAGE
     Route: 048
     Dates: start: 20050509, end: 20051031
  3. LANTHANUM CARBONATE (LANTHANUM CARBONATE) TABLET CHEWABLE [Suspect]
     Indication: HYPERPHOSPHATAEMIA
     Dosage: 3000 MG, DAILY, ORAL; SEE IMAGE
     Route: 048
     Dates: start: 20051101, end: 20051114
  4. LANTHANUM CARBONATE (LANTHANUM CARBONATE) TABLET CHEWABLE [Suspect]
     Indication: HYPERPHOSPHATAEMIA
     Dosage: 3000 MG, DAILY, ORAL; SEE IMAGE
     Route: 048
     Dates: start: 20051115, end: 20051128
  5. LANTHANUM CARBONATE (LANTHANUM CARBONATE) TABLET CHEWABLE [Suspect]
     Indication: HYPERPHOSPHATAEMIA
     Dosage: 3000 MG, DAILY, ORAL; SEE IMAGE
     Route: 048
     Dates: start: 20051129, end: 20051223
  6. CARVEDILOL [Concomitant]
  7. NIFEDIPINE [Concomitant]
  8. CALCIUM CARBONATE [Concomitant]
  9. MECOBALAMIN (MECOBALAMIN) [Concomitant]
  10. ALLOPURINOL [Concomitant]
  11. LOSARTAN POTASSIUM [Concomitant]
  12. HEPARIN /00027704/(HEPARIN SODIUM) [Concomitant]
  13. SARPOGRELATE HYDROCHLORIDE (SARPOGRELATE HYDROCHLORIDE) [Concomitant]
  14. BERAPROST SODIUM (BERAPROST SODIUM) [Concomitant]
  15. TRIAZOLAM [Concomitant]
  16. REBAMIPIDE (REBAMIPIDE) [Concomitant]

REACTIONS (4)
  - GASTRIC CANCER [None]
  - GASTRITIS ATROPHIC [None]
  - HEPATIC CYST [None]
  - RENAL CYST [None]
